FAERS Safety Report 5977028-3 (Version None)
Quarter: 2008Q4

REPORT INFORMATION
  Report Type: 
  Country: None (occurrence: None)
  Receive Date: 20081203
  Receipt Date: 20081125
  Transmission Date: 20090506
  Serious: Yes (Other)
  Sender: FDA-Public Use
  Company Number: US-ASTRAZENECA-2008UW26445

PATIENT
  Age: 55 Year
  Sex: Female

DRUGS (1)
  1. SEROQUEL [Suspect]
     Route: 048
     Dates: start: 20040902

REACTIONS (3)
  - DEPENDENCE [None]
  - INSOMNIA [None]
  - LUNG CARCINOMA CELL TYPE UNSPECIFIED STAGE IV [None]
